FAERS Safety Report 5652580-6 (Version None)
Quarter: 2008Q1

REPORT INFORMATION
  Report Type: 
  Country: None (occurrence: None)
  Receive Date: 20080306
  Receipt Date: 20080229
  Transmission Date: 20080703
  Serious: Yes (Other)
  Sender: FDA-Public Use
  Company Number: JP-ASTRAZENECA-2008AP01578

PATIENT
  Age: 61 Year
  Sex: Female

DRUGS (1)
  1. XYLOCAINE [Suspect]
     Route: 058

REACTIONS (1)
  - ABDOMINAL DISCOMFORT [None]
